FAERS Safety Report 14366482 (Version 2)
Quarter: 2018Q1

REPORT INFORMATION
  Report Type: Spontaneous
  Country: PT (occurrence: PT)
  Receive Date: 20180109
  Receipt Date: 20180330
  Transmission Date: 20180509
  Serious: Yes (Life-Threatening)
  Sender: FDA-Public Use
  Company Number: PT-WEST-WARD PHARMACEUTICALS CORP.-PT-H14001-18-00023

PATIENT
  Age: 70 Year
  Sex: Male
  Weight: 70 kg

DRUGS (8)
  1. AMIODARONA HIKMA [Suspect]
     Active Substance: AMIODARONE
     Dosage: B?LUS 300 MG SEGUIDO DE PERFUS?O DE 600 MG (TER? FEITO UMA DOSE TOTAL DE 400 A 500 MG).
     Route: 041
     Dates: start: 20171212, end: 20171213
  2. HIDROCORTISONA GENERIS [Concomitant]
     Indication: BRONCHOSPASM
     Route: 042
     Dates: start: 20171212, end: 20171212
  3. MORPHINE [Concomitant]
     Active Substance: MORPHINE
     Indication: DYSPNOEA
     Route: 042
     Dates: start: 20171212, end: 20171212
  4. METOPROLOL. [Concomitant]
     Active Substance: METOPROLOL
     Indication: ATRIAL FLUTTER
     Route: 042
     Dates: start: 20171212, end: 20171212
  5. AMIODARONA HIKMA [Suspect]
     Active Substance: AMIODARONE
     Indication: ATRIAL FLUTTER
     Route: 040
     Dates: start: 20171212, end: 20171213
  6. FUROSEMIDA LABESFAL [Concomitant]
     Indication: FLUID OVERLOAD
     Route: 042
     Dates: start: 20171212, end: 20171212
  7. ENOXAPARIN SODIUM. [Concomitant]
     Active Substance: ENOXAPARIN SODIUM
     Indication: PROPHYLAXIS
     Route: 058
     Dates: start: 20171212, end: 20171212
  8. RIVAROXABAN [Concomitant]
     Active Substance: RIVAROXABAN
     Indication: PROPHYLAXIS
     Route: 048
     Dates: end: 20171212

REACTIONS (5)
  - Hepatic failure [Recovered/Resolved with Sequelae]
  - Renal failure [Unknown]
  - Cell death [Recovered/Resolved]
  - Lactic acidosis [Recovered/Resolved]
  - Shock [Recovered/Resolved]

NARRATIVE: CASE EVENT DATE: 20171212
